FAERS Safety Report 4281955-5 (Version None)
Quarter: 2004Q1

REPORT INFORMATION
  Report Type: 
  Country: None (occurrence: None)
  Receive Date: 20040128
  Receipt Date: 20040112
  Transmission Date: 20041129
  Serious: Yes (Other)
  Sender: FDA-Public Use
  Company Number: A-US2003-04067

PATIENT
  Age: 76 Year
  Sex: Male
  Weight: 88 kg

DRUGS (11)
  1. TRACLEER [Suspect]
     Indication: PULMONARY HYPERTENSION
     Dosage: SEE IMAGE
     Route: 048
     Dates: start: 20030926, end: 20031026
  2. TRACLEER [Suspect]
     Indication: PULMONARY HYPERTENSION
     Dosage: SEE IMAGE
     Route: 048
     Dates: start: 20031027, end: 20031203
  3. ALBUTEROL [Concomitant]
  4. ATROVENT [Concomitant]
  5. ACETYLSALICYLIC ACID SRT [Concomitant]
  6. PROSCAR [Concomitant]
  7. ATENOLOL [Concomitant]
  8. DOXAZOSIN MESYLATE [Concomitant]
  9. ZYRTEC [Concomitant]
  10. LISINOPRIL [Concomitant]
  11. ISOSORBIDE (ISOSORBIDE) [Concomitant]

REACTIONS (3)
  - ALANINE AMINOTRANSFERASE INCREASED [None]
  - ASPARTATE AMINOTRANSFERASE INCREASED [None]
  - LIVER FUNCTION TEST ABNORMAL [None]
